FAERS Safety Report 8836907 (Version 1)
Quarter: 2012Q4

REPORT INFORMATION
  Report Type: Spontaneous
  Country: US (occurrence: None)
  Receive Date: 20121011
  Receipt Date: 20121011
  Transmission Date: 20130627
  Serious: No
  Sender: FDA-Public Use
  Company Number: None

PATIENT
  Age: 93 Year
  Sex: Male
  Weight: 67.3 kg

DRUGS (1)
  1. DIGOXIN [Suspect]
     Indication: ATRIAL FIBRILLATION
     Route: 048
     Dates: start: 20120718, end: 20120723

REACTIONS (7)
  - Dizziness [None]
  - Nausea [None]
  - Vomiting [None]
  - Bradycardia [None]
  - Troponin increased [None]
  - Electrocardiogram ST segment elevation [None]
  - Toxicity to various agents [None]
